FAERS Safety Report 11357446 (Version 1)
Quarter: 2015Q3

REPORT INFORMATION
  Report Type: Spontaneous
  Country: US (occurrence: US)
  Receive Date: 20150803
  Receipt Date: 20150803
  Transmission Date: 20151125
  Serious: No
  Sender: FDA-Public Use
  Company Number: US-ELI_LILLY_AND_COMPANY-US201404000870

PATIENT
  Sex: Male

DRUGS (2)
  1. ZYPREXA [Suspect]
     Active Substance: OLANZAPINE
     Indication: TACHYPHRENIA
     Dosage: 2.5 MG, UNKNOWN
     Route: 065
     Dates: end: 2013
  2. ZYPREXA [Suspect]
     Active Substance: OLANZAPINE
     Indication: GENERALISED ANXIETY DISORDER
     Dosage: 5 MG, UNKNOWN
     Route: 065
     Dates: start: 2004

REACTIONS (3)
  - Fatigue [Unknown]
  - Off label use [Unknown]
  - Sluggishness [Unknown]
